FAERS Safety Report 8621589-2 (Version None)
Quarter: 2012Q3

REPORT INFORMATION
  Report Type: 
  Country: None (occurrence: None)
  Receive Date: 20120820
  Receipt Date: 20120820
  Transmission Date: 20120928
  Serious: Yes (Hospitalization)
  Sender: FDA-Public Use
  Company Number: None

PATIENT
  Age: 68 Year
  Sex: Female
  Weight: 94 kg

DRUGS (1)
  1. BENZOCAINE 20% SPRAY BEUTLICH [Suspect]
     Indication: ANAESTHESIA PROCEDURE
     Dosage: 2 SPRAYS, ONCE, OROPHARINGE
     Dates: start: 20120709, end: 20120709

REACTIONS (1)
  - OXYGEN SATURATION DECREASED [None]
